FAERS Safety Report 5601694-5 (Version None)
Quarter: 2008Q1

REPORT INFORMATION
  Report Type: 
  Country: None (occurrence: None)
  Receive Date: 20080124
  Receipt Date: 20080117
  Transmission Date: 20080703
  Serious: Yes (Other)
  Sender: FDA-Public Use
  Company Number: US-GENENTECH-250649

PATIENT
  Sex: Female
  Weight: 74 kg

DRUGS (3)
  1. HERCEPTIN [Suspect]
     Indication: BREAST CANCER
     Dosage: 275 MG, 1/WEEK
     Route: 042
     Dates: start: 20070718
  2. TAXOTERE [Concomitant]
     Indication: DRUG USE FOR UNKNOWN INDICATION
     Dosage: 128 MG, UNK
     Dates: start: 20070718
  3. CARBOPLATIN [Concomitant]
     Indication: DRUG USE FOR UNKNOWN INDICATION
     Dosage: 680 MG, UNK
     Dates: start: 20070718

REACTIONS (1)
  - PERICARDIAL EFFUSION [None]
